FAERS Safety Report 7141491-5 (Version None)
Quarter: 2010Q4

REPORT INFORMATION
  Report Type: 
  Country: None (occurrence: None)
  Receive Date: 20101126
  Receipt Date: 20101112
  Transmission Date: 20110411
  Serious: Yes (Hospitalization)
  Sender: FDA-Public Use
  Company Number: 1000016665

PATIENT
  Age: 56 Year
  Sex: Male

DRUGS (4)
  1. NEBIVOLOL (NEBIVOLOL HYDROCHLORIDE) [Suspect]
     Indication: PORTAL HYPERTENSION
     Dosage: 5 MG (5 MG, 1 IN 1 D), ORAL
     Route: 048
     Dates: start: 20100805, end: 20100929
  2. ARADOIS (LOSARTAN POTASSIUM) (LOSARTAN POTASSIUM) [Concomitant]
  3. LERCANIDIPINE [Concomitant]
  4. PROPRANOLOL [Concomitant]

REACTIONS (2)
  - GASTROINTESTINAL HAEMORRHAGE [None]
  - OFF LABEL USE [None]
